FAERS Safety Report 23810227 (Version 2)
Quarter: 2024Q2

REPORT INFORMATION
  Report Type: Spontaneous
  Country: GB (occurrence: GB)
  Receive Date: 20240502
  Receipt Date: 20240508
  Transmission Date: 20240715
  Serious: Yes (Hospitalization, Other)
  Sender: FDA-Public Use
  Company Number: GB-002147023-NVSC2024GB089573

PATIENT
  Age: 5 Year
  Sex: Female
  Weight: 22.7 kg

DRUGS (23)
  1. CYCLOPHOSPHAMIDE [Suspect]
     Active Substance: CYCLOPHOSPHAMIDE
     Indication: Refractory cancer
     Dosage: 210 MG ON DAYS 1-5 OF EVERY 21 DAYS, EVERY 1 DAYS, ONGOING
     Route: 042
     Dates: start: 20221005
  2. CYCLOPHOSPHAMIDE [Suspect]
     Active Substance: CYCLOPHOSPHAMIDE
     Indication: Recurrent cancer
     Dosage: UNK
     Route: 065
     Dates: start: 20210802, end: 20211011
  3. CYCLOPHOSPHAMIDE [Suspect]
     Active Substance: CYCLOPHOSPHAMIDE
     Indication: Refractory cancer
     Dosage: UNK
     Route: 065
     Dates: start: 20211101, end: 20211126
  4. CYCLOPHOSPHAMIDE [Suspect]
     Active Substance: CYCLOPHOSPHAMIDE
     Indication: Neuroblastoma
  5. CYCLOPHOSPHAMIDE [Suspect]
     Active Substance: CYCLOPHOSPHAMIDE
     Indication: Recurrent cancer
  6. TOPOTECAN [Suspect]
     Active Substance: TOPOTECAN HYDROCHLORIDE
     Indication: Recurrent cancer
     Dosage: 0.64 MG ON DAYS 1-5 OF EVERY 21 DAYS, EVERY 1 DAYS, ONGOING
     Route: 042
     Dates: start: 20221005
  7. TOPOTECAN [Suspect]
     Active Substance: TOPOTECAN HYDROCHLORIDE
     Indication: Recurrent cancer
  8. TOPOTECAN [Suspect]
     Active Substance: TOPOTECAN HYDROCHLORIDE
     Indication: Refractory cancer
  9. TOPOTECAN [Suspect]
     Active Substance: TOPOTECAN HYDROCHLORIDE
     Indication: Refractory cancer
  10. VENETOCLAX [Suspect]
     Active Substance: VENETOCLAX
     Indication: Refractory cancer
     Dosage: 350 MG ON DAYS 1-10 OF 21 DAY CYCLE, EVERY 1 DAYS, ONGOING
     Route: 048
     Dates: start: 20221003
  11. VENETOCLAX [Suspect]
     Active Substance: VENETOCLAX
     Indication: Recurrent cancer
  12. VENETOCLAX [Suspect]
     Active Substance: VENETOCLAX
     Indication: Recurrent cancer
  13. VENETOCLAX [Suspect]
     Active Substance: VENETOCLAX
     Indication: Refractory cancer
  14. COTRIMOXAZOLE [Concomitant]
     Active Substance: SULFAMETHOXAZOLE\TRIMETHOPRIM
     Indication: Prophylaxis
     Dosage: 360 MG, Q3W
     Route: 065
     Dates: start: 20221003
  15. CYCLIZINE [Concomitant]
     Active Substance: CYCLIZINE
     Indication: Prophylaxis of nausea and vomiting
     Dosage: 20 MG, 3/DAYS
     Route: 065
     Dates: start: 20221003
  16. GABAPENTIN [Concomitant]
     Active Substance: GABAPENTIN
     Indication: Analgesic therapy
     Dosage: 200 MG, 3/DAYS
     Route: 065
     Dates: start: 20221003
  17. HEPARIN [Concomitant]
     Active Substance: HEPARIN SODIUM
     Indication: Anticoagulant therapy
     Dosage: 2 ML, AS NECESSARY
     Route: 065
     Dates: start: 20221003
  18. METOCLOPRAMIDE [Concomitant]
     Active Substance: METOCLOPRAMIDE
     Indication: Prophylaxis of nausea and vomiting
     Dosage: 2 MG, 2/DAYS
     Route: 065
     Dates: start: 20221003
  19. METOCLOPRAMIDE [Concomitant]
     Active Substance: METOCLOPRAMIDE
     Indication: Prophylaxis of nausea and vomiting
  20. Octenisan [Concomitant]
     Indication: Prophylaxis of nausea and vomiting
     Dosage: 1 APPLICATION, EVERY 1 DAYS
     Route: 065
     Dates: start: 20221003
  21. Octenisan [Concomitant]
     Indication: Prophylaxis of nausea and vomiting
  22. OMEPRAZOLE [Concomitant]
     Active Substance: DONEPEZIL HYDROCHLORIDE\OMEPRAZOLE\OMEPRAZOLE MAGNESIUM
     Indication: Gastrooesophageal reflux prophylaxis
     Dosage: 10 MG, EVERY 1 DAYS
     Route: 065
     Dates: start: 20221003
  23. ONDANSETRON [Concomitant]
     Active Substance: ONDANSETRON
     Indication: Prophylaxis of nausea and vomiting
     Dosage: 4 MG, AS NECESSARY
     Route: 065
     Dates: start: 20221003

REACTIONS (9)
  - Febrile neutropenia [Recovered/Resolved]
  - Thrombocytopenia [Unknown]
  - Hypophagia [Unknown]
  - Faeces soft [Unknown]
  - Epistaxis [Unknown]
  - Abdominal pain [Unknown]
  - Diarrhoea [Unknown]
  - Anaemia [Unknown]
  - Constipation [Unknown]

NARRATIVE: CASE EVENT DATE: 20221014
